FAERS Safety Report 8326569-2 (Version None)
Quarter: 2012Q2

REPORT INFORMATION
  Report Type: 
  Country: None (occurrence: None)
  Receive Date: 20120501
  Receipt Date: 20120421
  Transmission Date: 20120825
  Serious: Yes (Other)
  Sender: FDA-Public Use
  Company Number: CA-JNJFOC-20120409510

PATIENT
  Sex: Female
  Weight: 84 kg

DRUGS (2)
  1. REMICADE [Suspect]
     Indication: CROHN'S DISEASE
     Route: 042
     Dates: start: 20120416
  2. REMICADE [Suspect]
     Route: 042
     Dates: start: 20120323

REACTIONS (7)
  - CHILLS [None]
  - NAUSEA [None]
  - ABDOMINAL PAIN [None]
  - DIZZINESS [None]
  - BACK PAIN [None]
  - HEADACHE [None]
  - VISION BLURRED [None]
